FAERS Safety Report 16316201 (Version 2)
Quarter: 2019Q2

REPORT INFORMATION
  Report Type: Report from Study
  Country: US (occurrence: US)
  Receive Date: 20190515
  Receipt Date: 20190620
  Transmission Date: 20190711
  Serious: Yes (Other)
  Sender: FDA-Public Use
  Company Number: US-TESARO-2019-TSO00262-US

PATIENT
  Age: 63 Year
  Sex: Male

DRUGS (2)
  1. ZEJULA [Suspect]
     Active Substance: NIRAPARIB
     Dosage: 100 MG, EVERY OTHER DAY
     Route: 048
     Dates: start: 20190226
  2. ZEJULA [Suspect]
     Active Substance: NIRAPARIB
     Indication: PANCREATIC CARCINOMA
     Dosage: 100 MG, QD, PM WITHOUT FOOD
     Route: 048
     Dates: start: 20190110

REACTIONS (13)
  - Tumour marker increased [Unknown]
  - Unevaluable event [Unknown]
  - Product use in unapproved indication [Unknown]
  - Inappropriate schedule of product administration [Unknown]
  - Blood pressure increased [Recovered/Resolved]
  - Underdose [Unknown]
  - Vision blurred [Recovered/Resolved]
  - Headache [Recovered/Resolved]
  - Inflammation [Unknown]
  - Nausea [Recovered/Resolved]
  - Constipation [Recovering/Resolving]
  - Thrombosis [Not Recovered/Not Resolved]
  - Hepatic mass [Unknown]

NARRATIVE: CASE EVENT DATE: 20190110
